FAERS Safety Report 9153609 (Version 1)
Quarter: 2013Q1

REPORT INFORMATION
  Report Type: Spontaneous
  Country: GB (occurrence: None)
  Receive Date: 20130204
  Receipt Date: 20130204
  Transmission Date: 20140127
  Serious: Yes (Other)
  Sender: FDA-Public Use
  Company Number: B0863872A

PATIENT
  Age: 31 Year
  Sex: Female

DRUGS (2)
  1. COMBIVIR [Suspect]
     Indication: HIV INFECTION
  2. KALETRA [Suspect]
     Indication: HIV INFECTION

REACTIONS (5)
  - Immune reconstitution inflammatory syndrome [None]
  - Lymphadenopathy [None]
  - Kaposi^s sarcoma [None]
  - Caesarean section [None]
  - Exposure during pregnancy [None]
